FAERS Safety Report 9222900 (Version 1)
Quarter: 2013Q2

REPORT INFORMATION
  Report Type: Spontaneous
  Country: DE (occurrence: DE)
  Receive Date: 20130410
  Receipt Date: 20130410
  Transmission Date: 20140414
  Serious: Yes (Other)
  Sender: FDA-Public Use
  Company Number: DE-ROCHE-1209885

PATIENT
  Sex: 0

DRUGS (1)
  1. ACTILYSE [Suspect]
     Indication: PRODUCT USED FOR UNKNOWN INDICATION
     Route: 065

REACTIONS (6)
  - Sinus bradycardia [Unknown]
  - Hypotension [Unknown]
  - Facial paresis [Unknown]
  - Cerebral thrombosis [Unknown]
  - Muscular weakness [Unknown]
  - Dysarthria [Unknown]
